FAERS Safety Report 4808627-X (Version None)
Quarter: 2005Q4

REPORT INFORMATION
  Report Type: 
  Country: None (occurrence: None)
  Receive Date: 20051021
  Receipt Date: 20051021
  Transmission Date: 20060501
  Serious: Yes (Other)
  Sender: FDA-Public Use
  Company Number: None

PATIENT
  Age: 52 Year
  Sex: Female
  Weight: 63.9572 kg

DRUGS (11)
  1. ABILIFY [Suspect]
     Indication: PSYCHOTIC DISORDER
     Dosage: 30 MG DAILY PO
     Route: 048
     Dates: start: 20050301, end: 20051018
  2. IPRATROPIUM BROMIDE [Concomitant]
  3. SERTRALINE HCL [Concomitant]
  4. LORATADINE [Concomitant]
  5. BENZTROPINE MESYLATE [Concomitant]
  6. ASPIRIN [Concomitant]
  7. LORAZEPAM [Concomitant]
  8. DIVALPROEX SODIUM [Concomitant]
  9. DOCUSATE [Concomitant]
  10. FINASTERIDE [Concomitant]
  11. OMEPRAZOLE [Concomitant]

REACTIONS (1)
  - HYPERKALAEMIA [None]
